FAERS Safety Report 5194509-3 (Version None)
Quarter: 2006Q4

REPORT INFORMATION
  Report Type: 
  Country: None (occurrence: None)
  Receive Date: 20061222
  Receipt Date: 20061221
  Transmission Date: 20070319
  Serious: Yes (Hospitalization)
  Sender: FDA-Public Use
  Company Number: FRWYE914321DEC06

PATIENT
  Age: 97 Year
  Sex: Female

DRUGS (5)
  1. EFFEXOR [Suspect]
     Dosage: 50 MG TOTAL DAILY ORAL
     Route: 048
     Dates: end: 20061117
  2. ACETAMINOPHEN [Concomitant]
  3. EUROBIOL (PANCREATIN) [Concomitant]
  4. TRANXENE [Concomitant]
  5. CALCIFEROL CO (CALCIUM PHOSPHATE/ERGOCALCIFEROL0 [Concomitant]

REACTIONS (15)
  - ALANINE AMINOTRANSFERASE INCREASED [None]
  - ASPARTATE AMINOTRANSFERASE INCREASED [None]
  - BLADDER DISTENSION [None]
  - BLOOD GLUCOSE INCREASED [None]
  - CATARACT [None]
  - CONFUSIONAL STATE [None]
  - CREATININE RENAL CLEARANCE DECREASED [None]
  - FALL [None]
  - GAMMA-GLUTAMYLTRANSFERASE INCREASED [None]
  - GLASGOW COMA SCALE ABNORMAL [None]
  - HALLUCINATION, VISUAL [None]
  - HYPERTENSION [None]
  - PROTEIN TOTAL INCREASED [None]
  - PSYCHOMOTOR RETARDATION [None]
  - VISUAL ACUITY REDUCED [None]
